FAERS Safety Report 4396162-5 (Version None)
Quarter: 2004Q3

REPORT INFORMATION
  Report Type: 
  Country: None (occurrence: None)
  Receive Date: 20040713
  Receipt Date: 20040705
  Transmission Date: 20050211
  Serious: Yes (Other)
  Sender: FDA-Public Use
  Company Number: PHNU2004DE02385

PATIENT
  Age: 0 None
  Sex: Female

DRUGS (1)
  1. TEGRETOL-XR [Suspect]
     Indication: EPILEPSY
     Dosage: 800MG/DAY
     Dates: start: 19960101

REACTIONS (5)
  - CERVICAL INCOMPETENCE [None]
  - DRUG EXPOSURE DURING PREGNANCY [None]
  - INFECTION [None]
  - LEUKOPENIA [None]
  - PREMATURE BABY [None]
